FAERS Safety Report 8623482-8 (Version None)
Quarter: 2012Q3

REPORT INFORMATION
  Report Type: 
  Country: None (occurrence: None)
  Receive Date: 20120827
  Receipt Date: 20120821
  Transmission Date: 20120928
  Serious: Yes (Hospitalization, Disabling, Other)
  Sender: FDA-Public Use
  Company Number: US-AMGEN-USASP2012049535

PATIENT
  Age: 54 Year
  Sex: Female
  Weight: 67.574 kg

DRUGS (2)
  1. PREDNISONE TAB [Concomitant]
     Indication: RHEUMATOID ARTHRITIS
     Dosage: 10 MG, QD
  2. ENBREL [Suspect]
     Indication: RHEUMATOID ARTHRITIS
     Dosage: 50 MG, QWK
     Route: 058
     Dates: start: 20111230, end: 20120208

REACTIONS (5)
  - OSTEOMYELITIS [None]
  - GANGRENE [None]
  - MOBILITY DECREASED [None]
  - STAPHYLOCOCCAL SEPSIS [None]
  - PAIN IN EXTREMITY [None]
